FAERS Safety Report 10827193 (Version 1)
Quarter: 2015Q1

REPORT INFORMATION
  Report Type: Report from Study
  Country: US (occurrence: US)
  Receive Date: 20150219
  Receipt Date: 20150219
  Transmission Date: 20150721
  Serious: No
  Sender: FDA-Public Use
  Company Number: US-ABBVIE-14K-163-1321361-00

PATIENT
  Age: 19 Year
  Sex: Female

DRUGS (1)
  1. HUMIRA [Suspect]
     Active Substance: ADALIMUMAB
     Indication: CROHN^S DISEASE
     Route: 065

REACTIONS (12)
  - Urticaria [Unknown]
  - Nasal dryness [Unknown]
  - Rash papular [Unknown]
  - Injection site erythema [Unknown]
  - Epistaxis [Unknown]
  - Feeling hot [Unknown]
  - Fear [Unknown]
  - Injection site papule [Unknown]
  - Rash pustular [Not Recovered/Not Resolved]
  - Sinus disorder [Unknown]
  - Hypersensitivity [Unknown]
  - Cough [Unknown]

NARRATIVE: CASE EVENT DATE: 2014
